FAERS Safety Report 18337143 (Version 1)
Quarter: 2020Q4

REPORT INFORMATION
  Report Type: Other
  Country: FR (occurrence: FR)
  Receive Date: 20201001
  Receipt Date: 20201001
  Transmission Date: 20210113
  Serious: Yes (Death, Other)
  Sender: FDA-Public Use
  Company Number: FR-ROCHE-2682268

PATIENT
  Age: 30 Year
  Sex: Male
  Weight: 57 kg

DRUGS (7)
  1. BENDAMUSTINE [Suspect]
     Active Substance: BENDAMUSTINE
     Indication: DIFFUSE LARGE B-CELL LYMPHOMA
     Dosage: C1
     Route: 065
     Dates: start: 20200820, end: 20200820
  2. WELLVONE [Concomitant]
     Active Substance: ATOVAQUONE
     Dates: start: 20200615, end: 20200916
  3. ZYMA D [Concomitant]
     Dates: start: 20200615, end: 20200916
  4. VALACICLOVIR [Concomitant]
     Active Substance: VALACYCLOVIR HYDROCHLORIDE
     Indication: ANTIVIRAL PROPHYLAXIS
     Dates: start: 20200213, end: 20200916
  5. POLATUZUMAB VEDOTIN. [Suspect]
     Active Substance: POLATUZUMAB VEDOTIN
     Indication: DIFFUSE LARGE B-CELL LYMPHOMA
     Dosage: C1
     Route: 065
     Dates: start: 20200820, end: 20200820
  6. RITUXIMAB. [Suspect]
     Active Substance: RITUXIMAB
     Indication: DIFFUSE LARGE B-CELL LYMPHOMA
     Dosage: C1
     Route: 041
     Dates: start: 20200820, end: 20200820
  7. FOLIC ACID. [Concomitant]
     Active Substance: FOLIC ACID
     Dates: start: 20200615, end: 20200916

REACTIONS (4)
  - Disease progression [Fatal]
  - Drug ineffective [Unknown]
  - Neutrophil count decreased [Unknown]
  - Infection [Unknown]

NARRATIVE: CASE EVENT DATE: 20200913
